FAERS Safety Report 15504408 (Version 2)
Quarter: 2018Q4

REPORT INFORMATION
  Report Type: Report from Study
  Country: US (occurrence: US)
  Receive Date: 20181016
  Receipt Date: 20181207
  Transmission Date: 20190205
  Serious: No
  Sender: FDA-Public Use
  Company Number: US-ALEXION PHARMACEUTICALS INC.-A201813439

PATIENT
  Sex: Male

DRUGS (1)
  1. SOLIRIS [Suspect]
     Active Substance: ECULIZUMAB
     Indication: PAROXYSMAL NOCTURNAL HAEMOGLOBINURIA
     Route: 065

REACTIONS (10)
  - Mean cell haemoglobin concentration abnormal [Unknown]
  - Haematocrit abnormal [Unknown]
  - Red blood cell count abnormal [Unknown]
  - Neutrophil count increased [Unknown]
  - Platelet count abnormal [Unknown]
  - White blood cell count decreased [Unknown]
  - Mean cell volume increased [Unknown]
  - Reticulocyte count abnormal [Unknown]
  - Reticulocyte percentage abnormal [Unknown]
  - Haemoglobin abnormal [Unknown]
